FAERS Safety Report 8851387 (Version 2)
Quarter: 2015Q3

REPORT INFORMATION
  Report Type: Report from Study
  Country: US (occurrence: US)
  Receive Date: 20121022
  Receipt Date: 20150824
  Transmission Date: 20151125
  Serious: Yes (Other)
  Sender: FDA-Public Use
  Company Number: US-ROCHE-1140548

PATIENT
  Sex: Female

DRUGS (6)
  1. PROTROPIN [Suspect]
     Active Substance: SOMATREM
     Route: 058
  2. PROTROPIN [Suspect]
     Active Substance: SOMATREM
     Indication: TURNER^S SYNDROME
     Route: 058
  3. PROTROPIN [Suspect]
     Active Substance: SOMATREM
     Route: 058
  4. PROTROPIN [Suspect]
     Active Substance: SOMATREM
     Route: 058
  5. PROTROPIN [Suspect]
     Active Substance: SOMATREM
     Route: 058
  6. PROTROPIN [Suspect]
     Active Substance: SOMATREM
     Dosage: 01/NOV /1993
     Route: 058

REACTIONS (7)
  - Cardiac murmur [Unknown]
  - Nipple disorder [Unknown]
  - Coarctation of the aorta [Unknown]
  - Micrognathia [Unknown]
  - Ear infection [Unknown]
  - Deformity thorax [Unknown]
  - Drug dose omission [Unknown]
